FAERS Safety Report 6756104-1 (Version None)
Quarter: 2010Q2

REPORT INFORMATION
  Report Type: 
  Country: None (occurrence: None)
  Receive Date: 20100524
  Receipt Date: 20100122
  Transmission Date: 20101027
  Serious: No
  Sender: FDA-Public Use
  Company Number: 005343

PATIENT
  Sex: Male
  Weight: 77.2 kg

DRUGS (12)
  1. CIMZIA [Suspect]
     Indication: CROHN'S DISEASE
     Dosage: (400 MG SUBCUTANEOUS)
     Route: 058
     Dates: start: 20080801
  2. IBUPROFEN [Suspect]
     Indication: PAIN
     Dosage: (PRN ORAL)
     Route: 048
     Dates: start: 20090501
  3. PREDNISONE [Concomitant]
  4. LOMOTIL /00034001/ [Concomitant]
  5. METHOTREXATE [Concomitant]
  6. CEFDINIR [Concomitant]
  7. CODEINE SUL TAB [Concomitant]
  8. MAGNESIUM OXIDE [Concomitant]
  9. POTASSIUM CITRATE [Concomitant]
  10. AMBIEN [Concomitant]
  11. ZOLOFT [Concomitant]
  12. SULFAZINE [Concomitant]

REACTIONS (7)
  - ARTHRALGIA [None]
  - ASTHENIA [None]
  - BLOOD CREATININE INCREASED [None]
  - JOINT STIFFNESS [None]
  - PRODUCTIVE COUGH [None]
  - SINUSITIS [None]
  - UPPER RESPIRATORY TRACT INFECTION [None]
